FAERS Safety Report 8951087 (Version 1)
Quarter: 2012Q4

REPORT INFORMATION
  Report Type: 
  Country: SE (occurrence: SE)
  Receive Date: 20121207
  Receipt Date: 20121207
  Transmission Date: 20130627
  Serious: Yes (Other)
  Sender: FDA-Public Use
  Company Number: PHHY2012SE023007

PATIENT
  Age: 48 Year
  Sex: Male

DRUGS (6)
  1. CLOZAPINE [Suspect]
     Route: 048
  2. LEPONEX [Suspect]
     Route: 048
  3. CLOZAPINE ACTAVIS [Suspect]
     Route: 048
  4. METHYLSCOPOLAMINE [Concomitant]
  5. ATENOLOL [Concomitant]
  6. NOZINAN [Concomitant]

REACTIONS (8)
  - Fall [Unknown]
  - Heart rate increased [Not Recovered/Not Resolved]
  - Blood pressure increased [Not Recovered/Not Resolved]
  - Skin disorder [Not Recovered/Not Resolved]
  - Fatigue [Not Recovered/Not Resolved]
  - Somnolence [Not Recovered/Not Resolved]
  - Hypomania [Not Recovered/Not Resolved]
  - Drooling [Not Recovered/Not Resolved]
